FAERS Safety Report 14951339 (Version 2)
Quarter: 2018Q2

REPORT INFORMATION
  Report Type: Spontaneous
  Country: JP (occurrence: JP)
  Receive Date: 20180530
  Receipt Date: 20180621
  Transmission Date: 20180711
  Serious: Yes (Death, Hospitalization)
  Sender: FDA-Public Use
  Company Number: JP-ELI_LILLY_AND_COMPANY-JP201805012254

PATIENT
  Age: 33 Year
  Sex: Male
  Weight: 49 kg

DRUGS (6)
  1. FLUOROURACIL. [Concomitant]
     Active Substance: FLUOROURACIL
     Indication: UNDIFFERENTIATED CARCINOMA OF COLON
     Dosage: UNK
     Dates: start: 20180320, end: 20180418
  2. IRINOTECAN [Concomitant]
     Active Substance: IRINOTECAN
     Indication: UNDIFFERENTIATED CARCINOMA OF COLON
     Dosage: UNK
     Dates: start: 20180320, end: 20180418
  3. CYRAMZA [Suspect]
     Active Substance: RAMUCIRUMAB
     Indication: UNDIFFERENTIATED CARCINOMA OF COLON
     Dosage: UNK
     Route: 041
     Dates: start: 20180320, end: 20180418
  4. LEVOFOLINATE CALCIUM [Concomitant]
     Active Substance: LEVOLEUCOVORIN CALCIUM
     Indication: UNDIFFERENTIATED CARCINOMA OF COLON
     Dosage: UNK
     Dates: start: 20180320, end: 20180418
  5. NAIXAN                             /00256201/ [Concomitant]
     Active Substance: NAPROXEN
     Dosage: 300 MG, DAILY
     Route: 048
     Dates: start: 20171202
  6. NEXIUM [Concomitant]
     Active Substance: ESOMEPRAZOLE MAGNESIUM
     Dosage: 20 MG, DAILY
     Route: 048
     Dates: start: 20171202

REACTIONS (1)
  - Gastric perforation [Fatal]

NARRATIVE: CASE EVENT DATE: 20180420
